FAERS Safety Report 21224438 (Version 1)
Quarter: 2022Q3

REPORT INFORMATION
  Report Type: Spontaneous
  Country: DK (occurrence: DK)
  Receive Date: 20220817
  Receipt Date: 20220817
  Transmission Date: 20221027
  Serious: Yes (Other)
  Sender: FDA-Public Use
  Company Number: None

PATIENT
  Sex: Female

DRUGS (2)
  1. MESALAMINE [Suspect]
     Active Substance: MESALAMINE
     Indication: Colitis ulcerative
     Dosage: 1000 MG, QD
     Dates: start: 20200506, end: 20210406
  2. MESALAMINE [Suspect]
     Active Substance: MESALAMINE
     Dosage: 3200 MG
     Dates: start: 20190709, end: 20210406

REACTIONS (2)
  - Tubulointerstitial nephritis [Unknown]
  - Renal impairment [Not Recovered/Not Resolved]

NARRATIVE: CASE EVENT DATE: 20200623
